FAERS Safety Report 6755600-0 (Version None)
Quarter: 2010Q2

REPORT INFORMATION
  Report Type: 
  Country: None (occurrence: None)
  Receive Date: 20100604
  Receipt Date: 20100524
  Transmission Date: 20101027
  Serious: Yes (Death)
  Sender: FDA-Public Use
  Company Number: PHHY2010US36063

PATIENT
  Sex: Female
  Weight: 52.91 kg

DRUGS (1)
  1. EXJADE [Suspect]
     Indication: MULTIPLE MYELOMA
     Dosage: 500 MG/DAY
     Route: 048
     Dates: start: 20100209

REACTIONS (1)
  - DEATH [None]
